FAERS Safety Report 8206877-6 (Version None)
Quarter: 2012Q1

REPORT INFORMATION
  Report Type: 
  Country: None (occurrence: None)
  Receive Date: 20120312
  Receipt Date: 20120229
  Transmission Date: 20120608
  Serious: Yes (Hospitalization)
  Sender: FDA-Public Use
  Company Number: UTC-015719

PATIENT
  Age: 48 Year
  Sex: Female
  Weight: 118.5 kg

DRUGS (3)
  1. UT-15C SR (SUSTAINED-RELEASE TABLET) [Concomitant]
  2. REMODULIN [Suspect]
     Indication: PULMONARY ARTERIAL HYPERTENSION
     Dosage: SUBCUTANEOUS
     Route: 058
     Dates: start: 20120126, end: 20120201
  3. REVATIO [Concomitant]

REACTIONS (1)
  - PAIN IN EXTREMITY [None]
